FAERS Safety Report 6239370-0 (Version None)
Quarter: 2009Q2

REPORT INFORMATION
  Report Type: 
  Country: None (occurrence: None)
  Receive Date: 20090622
  Receipt Date: 20090423
  Transmission Date: 20091009
  Serious: Yes (Hospitalization)
  Sender: FDA-Public Use
  Company Number: TR-ELI_LILLY_AND_COMPANY-TR200906003277

PATIENT
  Age: 55 Year
  Sex: Male

DRUGS (2)
  1. HUMALOG MIX 50/50 [Suspect]
     Indication: HYPERGLYCAEMIA
     Dosage: 50 IU, EACH MORNING
     Route: 058
     Dates: start: 20070801
  2. HUMALOG MIX 50/50 [Suspect]
     Dosage: 30 IU, EACH EVENING
     Route: 058
     Dates: start: 20070801

REACTIONS (3)
  - HYPERGLYCAEMIA [None]
  - HYPOAESTHESIA [None]
  - PARAESTHESIA [None]
